FAERS Safety Report 24446924 (Version 4)
Quarter: 2024Q4

REPORT INFORMATION
  Report Type: Spontaneous
  Country: DE (occurrence: DE)
  Receive Date: 20241016
  Receipt Date: 20241125
  Transmission Date: 20250115
  Serious: Yes (Hospitalization, Other)
  Sender: BAUSCH AND LOMB
  Company Number: DE-002147023-NVSC2022DE178410

PATIENT
  Sex: Female
  Weight: 67.5 kg

DRUGS (21)
  1. DICLOFENAC [Suspect]
     Active Substance: DICLOFENAC
     Indication: Product used for unknown indication
     Dosage: UNK
     Route: 065
  2. COSENTYX [Suspect]
     Active Substance: SECUKINUMAB
     Indication: Psoriatic arthropathy
     Dosage: 300 MG, ONCE/SINGLE
     Route: 065
     Dates: start: 20211213, end: 20211213
  3. COSENTYX [Suspect]
     Active Substance: SECUKINUMAB
     Dosage: 300 MG, ONCE/SINGLE (INJECTION NOS)
     Route: 065
     Dates: start: 20211220, end: 20211220
  4. COSENTYX [Suspect]
     Active Substance: SECUKINUMAB
     Dosage: 300 MG, ONCE/SINGLE (INJECTION NOS)
     Route: 065
     Dates: start: 20211213, end: 20211213
  5. COSENTYX [Suspect]
     Active Substance: SECUKINUMAB
     Dosage: 300 MG, ONCE/SINGLE (INJECTION NOS)
     Route: 065
     Dates: start: 20220207, end: 20220207
  6. COSENTYX [Suspect]
     Active Substance: SECUKINUMAB
     Dosage: 300 MG, ONCE/SINGLE (INJECTION NOS)
     Route: 065
     Dates: start: 20220103, end: 20220103
  7. COSENTYX [Suspect]
     Active Substance: SECUKINUMAB
     Dosage: 300 MG, ONCE/SINGLE (INJECTION NOS)
     Route: 065
     Dates: start: 20211227, end: 20211227
  8. AMLODIPINE\CANDESARTAN CILEXETIL [Concomitant]
     Active Substance: AMLODIPINE\CANDESARTAN CILEXETIL
     Indication: Hypertension
     Dosage: 8 MG/ 5 MG, QD (IN THE MORNING)
     Route: 048
     Dates: start: 20220316
  9. PANTOPRAZOLE [Concomitant]
     Active Substance: PANTOPRAZOLE
     Indication: Prophylaxis against gastrointestinal ulcer
     Dosage: 40 MG, PRN
     Route: 048
     Dates: start: 202111
  10. PANTOPRAZOLE [Concomitant]
     Active Substance: PANTOPRAZOLE
     Dosage: UNK
     Route: 065
  11. METAMIZOLE [Concomitant]
     Active Substance: METAMIZOLE
     Indication: Spondylitis
     Dosage: 500 MG, PRN
     Route: 048
     Dates: start: 20220507
  12. TRAMADOL [Concomitant]
     Active Substance: TRAMADOL
     Indication: Spondylitis
     Dosage: 100 MG, PRN
     Route: 048
     Dates: start: 20220507
  13. VITAMIN D [Concomitant]
     Active Substance: VITAMIN D NOS
     Indication: Vitamin D deficiency
     Dosage: 2.000 IU, QD
     Route: 048
     Dates: start: 20211108
  14. IBUPROFEN [Concomitant]
     Active Substance: IBUPROFEN
     Indication: Spondylitis
     Dosage: 600 MG, PRN
     Route: 048
     Dates: start: 201411, end: 202203
  15. IBUPROFEN [Concomitant]
     Active Substance: IBUPROFEN
     Dosage: 600 MG, PRN
     Route: 048
     Dates: start: 20220629
  16. IBUPROFEN [Concomitant]
     Active Substance: IBUPROFEN
     Dosage: UNK
     Route: 065
  17. CIPROFLOXACIN HYDROCHLORIDE [Concomitant]
     Active Substance: CIPROFLOXACIN HYDROCHLORIDE
     Indication: Bacterial infection
     Dosage: 500 MG, BID (IN THE MORNING AND EVENING)
     Route: 048
     Dates: start: 20220316, end: 20220321
  18. ENALAPRIL [Concomitant]
     Active Substance: ENALAPRIL
     Indication: Hypertension
     Dosage: 20 MG, QD (IN THE MORNING)
     Route: 048
     Dates: start: 201504, end: 202203
  19. ENALAPRIL [Concomitant]
     Active Substance: ENALAPRIL
     Dosage: UNK
     Route: 065
  20. FOSTER [Concomitant]
     Active Substance: BECLOMETHASONE\FORMOTEROL
     Indication: Chronic obstructive pulmonary disease
     Dosage: 100/ 6 UG , PRN (SPRAY)
     Route: 055
     Dates: start: 202004
  21. FOSTER [Concomitant]
     Active Substance: BECLOMETHASONE\FORMOTEROL
     Dosage: UNK
     Route: 065

REACTIONS (5)
  - Bone cancer metastatic [Recovered/Resolved]
  - Renal cell carcinoma [Recovered/Resolved with Sequelae]
  - Haemangioma of bone [Unknown]
  - Magnesium deficiency [Unknown]
  - Drug hypersensitivity [Unknown]

NARRATIVE: CASE EVENT DATE: 20220309
